FAERS Safety Report 7108795-3 (Version None)
Quarter: 2010Q4

REPORT INFORMATION
  Report Type: 
  Country: None (occurrence: None)
  Receive Date: 20101117
  Receipt Date: 20101110
  Transmission Date: 20110411
  Serious: Yes (Death, Hospitalization)
  Sender: FDA-Public Use
  Company Number: JP-ACTELION-A-CH2010-41549

PATIENT
  Age: 76 Year
  Sex: Female

DRUGS (3)
  1. TRACLEER [Suspect]
     Indication: PORTOPULMONARY HYPERTENSION
     Dosage: 62.5 MG, BID
     Route: 048
     Dates: start: 20100702, end: 20101107
  2. WARFARIN POTASSIUM [Suspect]
     Dosage: UNK
     Dates: start: 20100625
  3. SILDENAFIL CITRATE [Concomitant]

REACTIONS (7)
  - BLOOD PRESSURE DECREASED [None]
  - CARDIAC FAILURE [None]
  - DECREASED APPETITE [None]
  - EPISTAXIS [None]
  - GASTROINTESTINAL HAEMORRHAGE [None]
  - MELAENA [None]
  - TRANSFUSION [None]
